FAERS Safety Report 20718539 (Version 1)
Quarter: 2022Q2

REPORT INFORMATION
  Report Type: Spontaneous
  Country: US (occurrence: US)
  Receive Date: 20220418
  Receipt Date: 20220418
  Transmission Date: 20220720
  Serious: Yes (Other)
  Sender: FDA-Public Use
  Company Number: US-SA-SAC00000000179960

PATIENT
  Age: 48 Year
  Sex: Female

DRUGS (1)
  1. ZANTAC [Suspect]
     Active Substance: RANITIDINE HYDROCHLORIDE
     Dosage: 75 MG, FREQ- OTHER
     Route: 065
     Dates: start: 200501, end: 202012

REACTIONS (1)
  - Renal cancer stage II [Unknown]

NARRATIVE: CASE EVENT DATE: 20210601
